FAERS Safety Report 12356192 (Version 1)
Quarter: 2016Q2

REPORT INFORMATION
  Report Type: Spontaneous
  Country: FR (occurrence: FR)
  Receive Date: 20160511
  Receipt Date: 20160511
  Transmission Date: 20160815
  Serious: Yes (Hospitalization, Other)
  Sender: FDA-Public Use
  Company Number: FR-ELI_LILLY_AND_COMPANY-FR201603011088

PATIENT
  Age: 87 Year
  Sex: Female
  Weight: 57.8 kg

DRUGS (15)
  1. FORSTEO [Suspect]
     Active Substance: TERIPARATIDE
     Indication: OSTEOPOROSIS
     Dosage: 20 UG, QD
     Route: 058
     Dates: start: 201510, end: 20160324
  2. DOLIPRANE [Concomitant]
     Active Substance: ACETAMINOPHEN
  3. PRAVASTATIN [Concomitant]
     Active Substance: PRAVASTATIN\PRAVASTATIN SODIUM
  4. INEXIUM                            /01479302/ [Concomitant]
     Active Substance: ESOMEPRAZOLE MAGNESIUM
     Dosage: 20 MG, QD
     Route: 048
  5. FLUDEX                             /00340101/ [Concomitant]
     Active Substance: INDAPAMIDE
     Indication: HYPERTENSION
  6. IKOREL [Concomitant]
     Active Substance: NICORANDIL
     Indication: HYPERTENSION
  7. BISOCE [Concomitant]
     Active Substance: BISOPROLOL
     Indication: MYOCARDIAL INFARCTION
     Dosage: 2.5 MG, EACH EVENING
     Route: 048
  8. BISOCE [Concomitant]
     Active Substance: BISOPROLOL
     Indication: HYPERTENSION
  9. DUPHALAC [Concomitant]
     Active Substance: LACTULOSE
  10. IKOREL [Concomitant]
     Active Substance: NICORANDIL
     Indication: MYOCARDIAL INFARCTION
     Dosage: 20 MG, BID
     Route: 048
  11. KARDEGIC [Concomitant]
     Active Substance: ASPIRIN LYSINE
     Indication: MYOCARDIAL INFARCTION
     Dosage: 75 MG, UNKNOWN
     Route: 048
  12. ELISOR [Concomitant]
     Active Substance: PRAVASTATIN SODIUM
     Indication: MYOCARDIAL INFARCTION
     Dosage: 20 MG, QD
     Route: 048
  13. KARDEGIC [Concomitant]
     Active Substance: ASPIRIN LYSINE
     Indication: HYPERTENSION
  14. ELISOR [Concomitant]
     Active Substance: PRAVASTATIN SODIUM
     Indication: HYPERTENSION
  15. FLUDEX                             /00340101/ [Concomitant]
     Active Substance: INDAPAMIDE
     Indication: MYOCARDIAL INFARCTION
     Dosage: 1.5 MG, QD
     Route: 048

REACTIONS (5)
  - Polyuria [Recovered/Resolved]
  - Hypercalcaemia [Recovered/Resolved]
  - Polydipsia [Recovered/Resolved]
  - Blood alkaline phosphatase increased [Recovered/Resolved]
  - Constipation [Recovered/Resolved]

NARRATIVE: CASE EVENT DATE: 20160322
